FAERS Safety Report 15340592 (Version 9)
Quarter: 2019Q3

REPORT INFORMATION
  Report Type: Report from Study
  Country: US (occurrence: US)
  Receive Date: 20180831
  Receipt Date: 20190925
  Transmission Date: 20191004
  Serious: Yes (Hospitalization, Disabling)
  Sender: FDA-Public Use
  Company Number: US-ACTELION-A-US2017-153792

PATIENT
  Age: 54 Year
  Sex: Female
  Weight: 40.82 kg

DRUGS (5)
  1. VELETRI [Suspect]
     Active Substance: EPOPROSTENOL
     Indication: PULMONARY HYPERTENSION
     Dosage: 51 NG/KG, PER MIN
     Route: 042
  2. OPSUMIT [Suspect]
     Active Substance: MACITENTAN
     Indication: PULMONARY HYPERTENSION
     Dosage: 10 MG, QD
     Route: 048
     Dates: start: 20190130
  3. VELETRI [Suspect]
     Active Substance: EPOPROSTENOL
     Dosage: UNK
     Route: 042
  4. ADCIRCA [Concomitant]
     Active Substance: TADALAFIL
  5. VELETRI [Suspect]
     Active Substance: EPOPROSTENOL
     Dosage: 32 NG/KG, PER MIN
     Route: 042

REACTIONS (26)
  - Pyrexia [Recovered/Resolved]
  - Cough [Unknown]
  - Palpitations [Unknown]
  - Raynaud^s phenomenon [Unknown]
  - Therapy change [Unknown]
  - Diarrhoea [Unknown]
  - Scleroderma [Unknown]
  - Scleroderma associated digital ulcer [Unknown]
  - Headache [Unknown]
  - Muscular weakness [Unknown]
  - Pain in extremity [Unknown]
  - Erythema [Unknown]
  - Oedema [Unknown]
  - Unevaluable event [Unknown]
  - Nausea [Unknown]
  - Arthralgia [Unknown]
  - Rash [Unknown]
  - Pain in jaw [Unknown]
  - Malaise [Recovered/Resolved]
  - Gait inability [Unknown]
  - Dyspnoea [Unknown]
  - Nasopharyngitis [Recovered/Resolved]
  - Skin tightness [Unknown]
  - Rash macular [Unknown]
  - Fatigue [Unknown]
  - Dyspnoea exertional [Not Recovered/Not Resolved]

NARRATIVE: CASE EVENT DATE: 20180822
